FAERS Safety Report 20018848 (Version 1)
Quarter: 2021Q4

REPORT INFORMATION
  Report Type: Spontaneous
  Country: CA (occurrence: CA)
  Receive Date: 20211101
  Receipt Date: 20211101
  Transmission Date: 20220303
  Serious: Yes (Other)
  Sender: FDA-Public Use
  Company Number: CA-TEVA-2021-CA-1970219

PATIENT
  Age: 58 Year
  Sex: Female

DRUGS (8)
  1. LEFLUNOMIDE [Suspect]
     Active Substance: LEFLUNOMIDE
     Indication: Product used for unknown indication
     Route: 065
  2. METHOTREXATE [Suspect]
     Active Substance: METHOTREXATE
     Indication: Product used for unknown indication
     Route: 065
  3. PREDNISONE [Suspect]
     Active Substance: PREDNISONE
     Indication: Product used for unknown indication
     Route: 065
  4. CIMZIA [Suspect]
     Active Substance: CERTOLIZUMAB PEGOL
     Indication: Product used for unknown indication
     Route: 065
  5. COSENTYX [Suspect]
     Active Substance: SECUKINUMAB
     Indication: Product used for unknown indication
     Route: 065
  6. IXEKIZUMAB [Suspect]
     Active Substance: IXEKIZUMAB
     Indication: Product used for unknown indication
     Route: 065
  7. OTEZLA [Suspect]
     Active Substance: APREMILAST
     Indication: Product used for unknown indication
     Route: 065
  8. STELARA [Suspect]
     Active Substance: USTEKINUMAB
     Indication: Rheumatoid arthritis
     Route: 058

REACTIONS (2)
  - Drug-induced liver injury [Unknown]
  - Drug ineffective [Unknown]
